FAERS Safety Report 10183192 (Version 1)
Quarter: 2014Q2

REPORT INFORMATION
  Report Type: Spontaneous
  Country: US (occurrence: US)
  Receive Date: 20140520
  Receipt Date: 20140520
  Transmission Date: 20141212
  Serious: No
  Sender: FDA-Public Use
  Company Number: US-BAYER-2014-069736

PATIENT
  Age: 31 Year
  Sex: Male

DRUGS (1)
  1. CIPRO 10% ORAL SUSPENSION [Suspect]
     Indication: PROSTATITIS
     Dosage: UNK UNK, BID
     Dates: start: 20140317, end: 20140326

REACTIONS (2)
  - Hypoaesthesia [None]
  - Arthralgia [None]
